FAERS Safety Report 6783854-3 (Version None)
Quarter: 2010Q2

REPORT INFORMATION
  Report Type: 
  Country: None (occurrence: None)
  Receive Date: 20100622
  Receipt Date: 20100608
  Transmission Date: 20101027
  Serious: Yes (Other)
  Sender: FDA-Public Use
  Company Number: US-RB-011897-10

PATIENT
  Sex: Female

DRUGS (1)
  1. DELSYM [Suspect]
     Dosage: DRANK 3 BOTTLES OF DELSYM
     Dates: start: 20081201

REACTIONS (4)
  - DRUG ABUSE [None]
  - EUPHORIC MOOD [None]
  - FEELING DRUNK [None]
  - HYPOAESTHESIA [None]
